FAERS Safety Report 6926011-X (Version None)
Quarter: 2010Q3

REPORT INFORMATION
  Report Type: 
  Country: None (occurrence: None)
  Receive Date: 20100816
  Receipt Date: 20100812
  Transmission Date: 20110219
  Serious: Yes (Death)
  Sender: FDA-Public Use
  Company Number: GB-ABBOTT-10P-167-0663326-00

PATIENT
  Sex: Male
  Weight: 76 kg

DRUGS (4)
  1. HUMIRA [Suspect]
     Indication: ANKYLOSING SPONDYLITIS
     Route: 058
     Dates: start: 20061003, end: 20080915
  2. SULPHASALAZINE [Concomitant]
     Indication: PRODUCT USED FOR UNKNOWN INDICATION
  3. AZATHIOPRINE [Concomitant]
     Indication: PRODUCT USED FOR UNKNOWN INDICATION
     Dates: start: 20080116
  4. LEFLUNOMIDE [Concomitant]
     Indication: PRODUCT USED FOR UNKNOWN INDICATION
     Dates: end: 20060216

REACTIONS (2)
  - CARDIOGENIC SHOCK [None]
  - DIVERTICULAR PERFORATION [None]
